FAERS Safety Report 9665445 (Version 1)
Quarter: 2013Q4

REPORT INFORMATION
  Report Type: Spontaneous
  Country: US (occurrence: None)
  Receive Date: 20131031
  Receipt Date: 20131031
  Transmission Date: 20140711
  Serious: Yes (Hospitalization)
  Sender: FDA-Public Use
  Company Number: None

PATIENT
  Age: 65 Year
  Sex: Male
  Weight: 88.9 kg

DRUGS (12)
  1. PIPERACILLIN/TAZOBACTAM [Suspect]
     Indication: PNEUMONIA
     Route: 042
     Dates: start: 20110720, end: 20110727
  2. VANCOMYCIN [Concomitant]
  3. ACETAMINOPHEN [Concomitant]
  4. BISACODYL [Concomitant]
  5. CHLORHEXIDINE [Concomitant]
  6. FENTANYL [Concomitant]
  7. FUROSEMIDE [Concomitant]
  8. HEPARIN [Concomitant]
  9. HYDRALAZINE [Concomitant]
  10. LORAZEPAM [Concomitant]
  11. RANITIDINE [Concomitant]
  12. SENNA [Concomitant]

REACTIONS (3)
  - Gallbladder disorder [None]
  - Cholestasis [None]
  - Blood creatinine increased [None]
